FAERS Safety Report 6215275-6 (Version None)
Quarter: 2009Q2

REPORT INFORMATION
  Report Type: 
  Country: None (occurrence: None)
  Receive Date: 20090604
  Receipt Date: 20090525
  Transmission Date: 20091009
  Serious: Yes (Hospitalization)
  Sender: FDA-Public Use
  Company Number: AU-SANOFI-SYNTHELABO-A01200905520

PATIENT
  Sex: Female
  Weight: 69 kg

DRUGS (6)
  1. METOPROLOL SUCCINATE [Concomitant]
     Indication: HYPERTENSION
     Dosage: UNK
     Route: 065
  2. DBL ASPIRIN [Concomitant]
     Indication: PROPHYLAXIS
     Dosage: UNK
     Route: 065
  3. DOSEP [Concomitant]
     Indication: SLEEP DISORDER
     Dosage: UNK
     Route: 065
  4. IMDUR [Concomitant]
     Indication: ANGINA PECTORIS
     Dosage: U UNK
     Route: 065
  5. LEVOTHYROXINE SODIUM [Concomitant]
     Indication: THYROID DISORDER
     Dosage: UNK
     Route: 065
  6. PLAVIX [Suspect]
     Indication: ANGINA PECTORIS
     Route: 048
     Dates: start: 20080923, end: 20090501

REACTIONS (5)
  - ANOREXIA [None]
  - NAUSEA [None]
  - SPINAL COMPRESSION FRACTURE [None]
  - VOMITING [None]
  - WEIGHT DECREASED [None]
